FAERS Safety Report 9034590 (Version 2)
Quarter: 2013Q1

REPORT INFORMATION
  Report Type: Spontaneous
  Country: FR (occurrence: None)
  Receive Date: 20130118
  Receipt Date: 20130128
  Transmission Date: 20140127
  Serious: Yes (Other)
  Sender: FDA-Public Use
  Company Number: 2012-10606

PATIENT
  Sex: Female

DRUGS (3)
  1. BISOPROLOL (UNKNOWN) (BISOPROLOL) UNK, UNKUNK [Suspect]
     Indication: PRODUCT USED FOR UNKNOWN INDICATION
  2. IPRATROPIUM (UNKNOWN) (IPRATROPIUM) UNK, UNKUNK [Suspect]
     Dosage: RESPIRATORY
  3. TERBUTALINE (TERBUTALINE) NEBULISER SOLUTION, 5MG/2ML [Suspect]
     Dosage: RESPIRATORY

REACTIONS (8)
  - Lymphoma [None]
  - Cardiac failure [None]
  - Respiratory failure [None]
  - Acne [None]
  - Oesophageal disorder [None]
  - Lung disorder [None]
  - Rash [None]
  - Pneumonia [None]
